FAERS Safety Report 13560069 (Version 1)
Quarter: 2017Q2

REPORT INFORMATION
  Report Type: Spontaneous
  Country: US (occurrence: US)
  Receive Date: 20170518
  Receipt Date: 20170518
  Transmission Date: 20170830
  Serious: No
  Sender: FDA-Public Use
  Company Number: US-PFIZER INC-2016580458

PATIENT
  Age: 66 Year
  Sex: Female

DRUGS (25)
  1. VENLAFAXINE [Concomitant]
     Active Substance: VENLAFAXINE HYDROCHLORIDE
     Dosage: 225 MG, DAILY [WITH FOOD]
     Route: 048
  2. FLUORIDEX [Concomitant]
     Active Substance: STANNOUS FLUORIDE
     Dosage: UNK UNK, 1X/DAY [USE A SMALL AMOUNT AT NIGHT. DO NOT EAT, DRINK, OR RINSE FOR 30 MINUTES AFTER USE]
  3. PAMELOR [Concomitant]
     Active Substance: NORTRIPTYLINE HYDROCHLORIDE
     Dosage: 150 MG, 1X/DAY [DAILY AT BEDTIME]
     Route: 048
  4. ATORVASTATIN [Concomitant]
     Active Substance: ATORVASTATIN
     Indication: BLOOD CHOLESTEROL ABNORMAL
     Dosage: 20 MG, DAILY [TAKE ONE HALF TABLET BY MOUTH DAILY]
  5. XALATAN [Concomitant]
     Active Substance: LATANOPROST
     Dosage: 1 GTT, 1X/DAY [INSTIL 1 DROP IN AFFECTED EYE(S) EVERY EVENING]
     Route: 047
  6. EFFEXOR [Concomitant]
     Active Substance: VENLAFAXINE HYDROCHLORIDE
     Dosage: 225 MG, 1X/DAY [3 CAPSULES EACH MORNING]
     Route: 048
  7. ZADITOR [Concomitant]
     Active Substance: KETOTIFEN FUMARATE
     Indication: EYE PRURITUS
     Dosage: 1 GTT, AS NEEDED [INSTIL 1 DROP IN AFFECTED EYE(S) EVERY 12 HOURS AS NEEDED]
     Route: 047
  8. KLONOPIN [Concomitant]
     Active Substance: CLONAZEPAM
     Dosage: UNK UNK, 1X/DAY [TAKE ONE-HALF TO ONE TABLET BY MOUTH DAILY AT BEDTIME]
     Route: 048
  9. LEVOTHYROXINE. [Concomitant]
     Active Substance: LEVOTHYROXINE
     Dosage: 100 UG, 1X/DAY [1 @ AM]
  10. LACTULOSE. [Concomitant]
     Active Substance: LACTULOSE
     Indication: CONSTIPATION
     Dosage: UNK UNK, 1X/DAY [TAKE 7.5 ML TO 15 ML BY MOUTH 1 TIME A DAY]
     Route: 048
  11. DENTA 5000 PLUS [Concomitant]
     Active Substance: SODIUM FLUORIDE
     Dosage: UNK UNK, 1X/DAY [SMALL AMOUNT AT NIGHT] [DO NOT EAT, DRINK OR RINSE FOR 30 MINUTES AFTER USE]
  12. LEVOTHROID [Concomitant]
     Active Substance: LEVOTHYROXINE SODIUM
     Dosage: 100 UG, DAILY [ON AN EMPTY STOMACH]
     Route: 048
  13. PANTOPRAZOLE [Concomitant]
     Active Substance: PANTOPRAZOLE
     Dosage: 80 MG, 2X/DAY
     Route: 048
  14. OXYCODONE W/PARACETAMOL [Concomitant]
     Active Substance: ACETAMINOPHEN\OXYCODONE HYDROCHLORIDE
     Dosage: UNK UNK, 3X/DAY [OXYCODONE 5 MG]/[ ACETAMINOPHEN 325 MG] [TAKE ONE-HALF TO ONE TABLET]
     Route: 048
  15. LYRICA [Suspect]
     Active Substance: PREGABALIN
     Indication: PAIN
     Dosage: 75 MG, 2X/DAY
     Route: 048
  16. WARFARIN [Concomitant]
     Active Substance: WARFARIN
     Dosage: 2.5 MG, UNK [TAKE AS DIRECTED BY THE ANTICOAGULATION CASE MANAGEMENT PROGRAM]
     Route: 048
  17. LIPITOR [Concomitant]
     Active Substance: ATORVASTATIN CALCIUM
     Indication: BLOOD CHOLESTEROL
     Dosage: 20 MG, DAILY [TAKE ONE-HALF TABLET]
     Route: 048
  18. LATANOPROST. [Concomitant]
     Active Substance: LATANOPROST
     Dosage: 1 GTT, 1X/DAY [INSTILL 1 DROP IN AFFECTED EYE(S) EVERY EVENING]
     Route: 047
  19. ROPINIROLE. [Concomitant]
     Active Substance: ROPINIROLE
     Dosage: 3 MG, 1X/DAY [1 @EVENING]
  20. REQUIP [Concomitant]
     Active Substance: ROPINIROLE HYDROCHLORIDE
     Indication: RESTLESS LEGS SYNDROME
     Dosage: 3 MG, 1X/DAY [MOUTH 1 TO 3 HOURS BEFORE BED EVERY NIGHT]
     Route: 048
  21. CLONAZEPAM. [Concomitant]
     Active Substance: CLONAZEPAM
     Dosage: UNK UNK, 1X/DAY [TAKE ONE-HALF TO ONE TABLET BY MOUTH DAILY AT BEDTIME]
     Route: 048
  22. RESTASIS [Concomitant]
     Active Substance: CYCLOSPORINE
     Dosage: 1 GTT, 2X/DAY [ONE DROP IN EACH EYE]
     Route: 047
  23. DILT-XR [Concomitant]
     Active Substance: DILTIAZEM
     Indication: ATRIAL FIBRILLATION
     Dosage: 240 MG, 2X/DAY
     Route: 048
  24. NORTRIPTYLINE [Concomitant]
     Active Substance: NORTRIPTYLINE
  25. PROTONIX [Concomitant]
     Active Substance: PANTOPRAZOLE SODIUM
     Dosage: 80 MG, 2X/DAY [TAKE 2 TABLETS]
     Route: 048

REACTIONS (1)
  - Drug ineffective [Unknown]
